FAERS Safety Report 5837644-6 (Version None)
Quarter: 2008Q3

REPORT INFORMATION
  Report Type: 
  Country: None (occurrence: None)
  Receive Date: 20080807
  Receipt Date: 20080731
  Transmission Date: 20090109
  Serious: Yes (Other)
  Sender: FDA-Public Use
  Company Number: PHHY2008CL16284

PATIENT
  Age: 83 Year
  Sex: Female

DRUGS (2)
  1. EXELON [Suspect]
     Indication: DEMENTIA ALZHEIMER'S TYPE
     Dosage: 1 PATCH/ DAY
     Route: 062
  2. DRUG THERAPY NOS [Concomitant]

REACTIONS (3)
  - ABASIA [None]
  - ANOREXIA [None]
  - DISORIENTATION [None]
